FAERS Safety Report 7409641-0 (Version None)
Quarter: 2011Q1

REPORT INFORMATION
  Report Type: 
  Country: None (occurrence: None)
  Receive Date: 20110301
  Receipt Date: 20100524
  Transmission Date: 20110831
  Serious: Yes (Hospitalization)
  Sender: FDA-Public Use
  Company Number: RB-09897-2010

PATIENT
  Age: 39 Year
  Sex: Male

DRUGS (1)
  1. SUBOXONE [Suspect]
     Indication: DRUG DEPENDENCE
     Dosage: (SUBLINGUAL)
     Route: 060
     Dates: start: 20090501, end: 20100517

REACTIONS (1)
  - PAIN [None]
